FAERS Safety Report 7633780-2 (Version None)
Quarter: 2011Q3

REPORT INFORMATION
  Report Type: 
  Country: None (occurrence: None)
  Receive Date: 20110725
  Receipt Date: 20110711
  Transmission Date: 20111222
  Serious: Yes (Other)
  Sender: FDA-Public Use
  Company Number: US-SANOFI-AVENTIS-2011SA044022

PATIENT
  Age: 8 Year
  Sex: Male

DRUGS (1)
  1. DANAZOL [Suspect]
     Indication: HEREDITARY ANGIOEDEMA
     Route: 048

REACTIONS (4)
  - PRECOCIOUS PUBERTY [None]
  - SKIN ODOUR ABNORMAL [None]
  - GROWTH ACCELERATED [None]
  - ACNE [None]
